FAERS Safety Report 8613267 (Version 2)
Quarter: 2013Q2

REPORT INFORMATION
  Report Type: Report from Study
  Country: US (occurrence: US)
  Receive Date: 20120613
  Receipt Date: 20130402
  Transmission Date: 20140414
  Serious: Yes (Other)
  Sender: FDA-Public Use
  Company Number: US-ACTELION-A-US2010-38904

PATIENT
  Age: 71 Year
  Sex: Male

DRUGS (3)
  1. TRACLEER [Suspect]
     Indication: PULMONARY ARTERIAL HYPERTENSION
     Dosage: 125 MG, BID
     Route: 048
     Dates: start: 201007
  2. TRACLEER [Suspect]
     Dosage: 67.5 MG, BID
     Route: 048
     Dates: start: 201006, end: 201007
  3. REVATIO [Concomitant]

REACTIONS (3)
  - Apparent death [Unknown]
  - Malaise [Unknown]
  - Dyspnoea [Recovered/Resolved]
